FAERS Safety Report 6931701-9 (Version None)
Quarter: 2010Q3

REPORT INFORMATION
  Report Type: 
  Country: None (occurrence: None)
  Receive Date: 20100819
  Receipt Date: 20100810
  Transmission Date: 20110219
  Serious: Yes (Other)
  Sender: FDA-Public Use
  Company Number: US-PFIZER INC-2010100910

PATIENT
  Age: 69 Year
  Sex: Female

DRUGS (7)
  1. XANAX [Suspect]
     Dosage: UNK
     Dates: start: 20100601, end: 20100601
  2. ARFORMOTEROL INHALED [Suspect]
     Indication: CHRONIC OBSTRUCTIVE PULMONARY DISEASE
     Dosage: 15 UG/2ML, 2X/DAY
     Dates: start: 20100621
  3. SYMBICORT [Concomitant]
     Dosage: UNK
     Dates: end: 20100720
  4. REMERON [Concomitant]
     Dosage: UNK
  5. ALBUTEROL SULFATE [Concomitant]
     Dosage: UNK
  6. PREDNISONE [Concomitant]
     Dosage: UNK
  7. MONTELUKAST SODIUM [Concomitant]
     Dosage: UNK

REACTIONS (5)
  - MUSCLE SPASMS [None]
  - NIGHTMARE [None]
  - TREMOR [None]
  - VISION BLURRED [None]
  - WEIGHT INCREASED [None]
